FAERS Safety Report 19901673 (Version 2)
Quarter: 2021Q4

REPORT INFORMATION
  Report Type: Spontaneous
  Country: JP (occurrence: JP)
  Receive Date: 20210930
  Receipt Date: 20211020
  Transmission Date: 20220303
  Serious: Yes (Other)
  Sender: FDA-Public Use
  Company Number: JP-NBI-S202100260BIPI

PATIENT
  Age: 8 Decade
  Sex: Female

DRUGS (2)
  1. OFEV [Suspect]
     Active Substance: NINTEDANIB
     Indication: Interstitial lung disease
     Route: 065
  2. CYCLOPHOSPHAMIDE [Concomitant]
     Active Substance: CYCLOPHOSPHAMIDE
     Indication: Product used for unknown indication
     Route: 065

REACTIONS (4)
  - Cardiac failure congestive [Unknown]
  - Pulmonary hypertension [Recovering/Resolving]
  - Renal failure [Not Recovered/Not Resolved]
  - Pericardial effusion [Unknown]
